FAERS Safety Report 24195027 (Version 4)
Quarter: 2024Q3

REPORT INFORMATION
  Report Type: Report from Study
  Country: US (occurrence: US)
  Receive Date: 20240809
  Receipt Date: 20240930
  Transmission Date: 20241016
  Serious: Yes (Hospitalization, Other)
  Sender: TAKEDA
  Company Number: US-TAKEDA-2024TUS041304

PATIENT
  Sex: Male
  Weight: 135.6 kg

DRUGS (3)
  1. FRUQUINTINIB [Suspect]
     Active Substance: FRUQUINTINIB
     Indication: Malignant pleural effusion
     Dosage: 5 MILLIGRAM
     Route: 048
     Dates: start: 20240415
  2. FRUQUINTINIB [Suspect]
     Active Substance: FRUQUINTINIB
     Indication: Colon neoplasm
     Dosage: 5 MILLIGRAM
     Route: 048
  3. FRUQUINTINIB [Suspect]
     Active Substance: FRUQUINTINIB
     Indication: Metastases to lung

REACTIONS (28)
  - Dehydration [Unknown]
  - Carcinoembryonic antigen increased [Unknown]
  - Abdominal pain upper [Unknown]
  - Cough [Unknown]
  - Lung disorder [Unknown]
  - Blood pressure increased [Unknown]
  - Malaise [Unknown]
  - Delayed sleep phase [Unknown]
  - Gingival disorder [Unknown]
  - Headache [Recovered/Resolved]
  - Speech disorder [Unknown]
  - Nausea [Unknown]
  - Constipation [Unknown]
  - Product dose omission issue [Unknown]
  - Illness [Unknown]
  - Respiratory tract infection [Unknown]
  - Depression [Unknown]
  - Pain [Unknown]
  - Vomiting [Unknown]
  - Oral pain [Unknown]
  - Gingival pain [Unknown]
  - Dysphonia [Unknown]
  - Aphthous ulcer [Unknown]
  - Fatigue [Unknown]
  - Dyspnoea [Unknown]
  - Back pain [Unknown]
  - Decreased appetite [Unknown]
  - Stomatitis [Unknown]
